FAERS Safety Report 24563561 (Version 3)
Quarter: 2025Q4

REPORT INFORMATION
  Report Type: Report from Study
  Country: US (occurrence: US)
  Receive Date: 20241030
  Receipt Date: 20251214
  Transmission Date: 20260117
  Serious: Yes (Other)
  Sender: ABBVIE
  Company Number: US-ABBVIE-5981724

PATIENT
  Age: 67 Year
  Sex: Female

DRUGS (3)
  1. SKYRIZI [Suspect]
     Active Substance: RISANKIZUMAB-RZAA
     Indication: Crohn^s disease
     Route: 058
     Dates: start: 2022
  2. SKYRIZI [Suspect]
     Active Substance: RISANKIZUMAB-RZAA
     Route: 058
     Dates: start: 20231115
  3. ZITHROMAX [Concomitant]
     Active Substance: AZITHROMYCIN DIHYDRATE
     Indication: Product used for unknown indication

REACTIONS (6)
  - Meniscus injury [Recovering/Resolving]
  - Arthritis [Recovering/Resolving]
  - Abdominal abscess [Unknown]
  - Illness [Unknown]
  - Sinusitis [Unknown]
  - Biliary tract infection [Unknown]

NARRATIVE: CASE EVENT DATE: 20241201
